FAERS Safety Report 6569193-4 (Version None)
Quarter: 2010Q1

REPORT INFORMATION
  Report Type: 
  Country: None (occurrence: None)
  Receive Date: 20100201
  Receipt Date: 20100201
  Transmission Date: 20100710
  Serious: Yes (Other)
  Sender: FDA-Public Use
  Company Number: None

PATIENT
  Age: 41 Year
  Sex: Female
  Weight: 61.6892 kg

DRUGS (1)
  1. CYMBALTA [Suspect]
     Indication: DEPRESSION
     Dosage: 30MG 1 TIME A DAY PO
     Route: 048
     Dates: start: 20091001, end: 20100101

REACTIONS (9)
  - CONSTIPATION [None]
  - DRUG DOSE OMISSION [None]
  - DRY EYE [None]
  - DRY MOUTH [None]
  - NIGHT SWEATS [None]
  - TERMINAL INSOMNIA [None]
  - VERTIGO [None]
  - WITHDRAWAL SYNDROME [None]
  - WRONG TECHNIQUE IN DRUG USAGE PROCESS [None]
